FAERS Safety Report 5171595-8 (Version None)
Quarter: 2006Q4

REPORT INFORMATION
  Report Type: 
  Country: None (occurrence: None)
  Receive Date: 20061205
  Receipt Date: 20061121
  Transmission Date: 20070319
  Serious: Yes (Hospitalization, Other)
  Sender: FDA-Public Use
  Company Number: 2005151202

PATIENT
  Age: 37 Year
  Sex: Female

DRUGS (8)
  1. NEURONTIN [Suspect]
     Indication: BIPOLAR DISORDER
     Dates: start: 20010301, end: 20010701
  2. NEURONTIN [Suspect]
     Indication: DEPRESSION
     Dates: start: 20010301, end: 20010701
  3. NEURONTIN [Suspect]
     Indication: PAIN
     Dates: start: 20010301, end: 20010701
  4. POVIDONE IODINE [Suspect]
  5. HYDROGEN PEROXIDE                 (HYDROGEN PEROXIDE) [Suspect]
  6. ALL OTHER THERAPEUTIC PRODUCTS [Suspect]
  7. LITHIUM                             (LITHIUM) [Concomitant]
  8. GEODON [Concomitant]

REACTIONS (12)
  - BIPOLAR DISORDER [None]
  - CONDITION AGGRAVATED [None]
  - CONFUSIONAL STATE [None]
  - DRUG INEFFECTIVE [None]
  - FEAR [None]
  - PARANOIA [None]
  - PSYCHOTIC DISORDER [None]
  - ROAD TRAFFIC ACCIDENT [None]
  - SOMNOLENCE [None]
  - SUICIDAL IDEATION [None]
  - SUICIDE ATTEMPT [None]
  - TACHYCARDIA [None]
